APPROVED DRUG PRODUCT: ALPHAGAN
Active Ingredient: BRIMONIDINE TARTRATE
Strength: 0.2% **Federal Register determination that product was not discontinued or withdrawn for safety or effectiveness reasons**
Dosage Form/Route: SOLUTION/DROPS;OPHTHALMIC
Application: N020613 | Product #001
Applicant: ALLERGAN INC
Approved: Sep 6, 1996 | RLD: Yes | RS: No | Type: DISCN